FAERS Safety Report 9143553 (Version 6)
Quarter: 2015Q2

REPORT INFORMATION
  Report Type: Report from Study
  Country: FR (occurrence: FR)
  Receive Date: 20130306
  Receipt Date: 20150529
  Transmission Date: 20150821
  Serious: Yes (Life-Threatening, Hospitalization)
  Sender: FDA-Public Use
  Company Number: FR-ROCHE-1196616

PATIENT
  Age: 65 Year
  Sex: Female

DRUGS (11)
  1. TIORFAN [Concomitant]
     Active Substance: RACECADOTRIL
     Route: 065
     Dates: start: 20130222
  2. OMEPRAZOLE. [Concomitant]
     Active Substance: OMEPRAZOLE
     Route: 065
     Dates: start: 20130222, end: 20130225
  3. INSULIN [Concomitant]
     Active Substance: INSULIN NOS
     Route: 065
     Dates: start: 20130225
  4. SODIUM BICARBONATE. [Concomitant]
     Active Substance: SODIUM BICARBONATE
     Route: 065
     Dates: start: 20130225
  5. DOCETAXEL. [Suspect]
     Active Substance: DOCETAXEL
     Indication: HER-2 POSITIVE BREAST CANCER
     Dosage: LAST DOSE PRIOR TO SAE: 15/FEB/2013, PERMANENTLY DISCONTINUED
     Route: 042
     Dates: start: 20130215, end: 20130215
  6. COVERAM [Concomitant]
     Active Substance: AMLODIPINE\PERINDOPRIL
     Route: 065
     Dates: end: 20130222
  7. TRIFLUCAN [Concomitant]
     Active Substance: FLUCONAZOLE
     Route: 065
     Dates: start: 20130222
  8. TRASTUZUMAB [Suspect]
     Active Substance: TRASTUZUMAB
     Indication: HER-2 POSITIVE BREAST CANCER
     Dosage: LAST DOSE PRIOR TO SAE: 14/FEB/2013, PERMANENTLY DISCONTINUED
     Route: 042
     Dates: start: 20130214, end: 20130214
  9. PERTUZUMAB [Suspect]
     Active Substance: PERTUZUMAB
     Indication: HER-2 POSITIVE BREAST CANCER
     Dosage: LAST DOSE PRIOR TO SAE: 14/FEB/2013, PERMANENTLY DISCONTINUED
     Route: 042
     Dates: start: 20130214, end: 20130214
  10. PRAVASTATIN [Concomitant]
     Active Substance: PRAVASTATIN\PRAVASTATIN SODIUM
  11. METFORMIN [Concomitant]
     Active Substance: METFORMIN HYDROCHLORIDE
     Route: 065
     Dates: end: 20130225

REACTIONS (1)
  - Acute kidney injury [Recovered/Resolved]

NARRATIVE: CASE EVENT DATE: 20130222
